FAERS Safety Report 24600566 (Version 4)
Quarter: 2025Q4

REPORT INFORMATION
  Report Type: Spontaneous
  Country: US (occurrence: US)
  Receive Date: 20241110
  Receipt Date: 20251229
  Transmission Date: 20260118
  Serious: No
  Sender: SANOFI AVENTIS
  Company Number: US-SA-2024SA318184

PATIENT
  Age: 60 Year
  Sex: Female

DRUGS (3)
  1. DUPIXENT [Suspect]
     Active Substance: DUPILUMAB
     Indication: Neurodermatitis
     Dosage: 600 MG, 1X
     Route: 058
     Dates: start: 202408, end: 202408
  2. DUPIXENT [Suspect]
     Active Substance: DUPILUMAB
     Dosage: 300 MG, QOW
     Route: 058
     Dates: start: 2024
  3. REZDIFFRA [Suspect]
     Active Substance: RESMETIROM
     Indication: Hepatic steatosis
     Dosage: UNK

REACTIONS (17)
  - Oesophageal disorder [Unknown]
  - Ear pain [Unknown]
  - Chest pain [Unknown]
  - Facial pain [Unknown]
  - Hypoglycaemia [Unknown]
  - Weight increased [Unknown]
  - Skin tightness [Unknown]
  - Skin oedema [Unknown]
  - Condition aggravated [Unknown]
  - Pain of skin [Unknown]
  - Pruritus [Unknown]
  - Injection site pain [Unknown]
  - Neurodermatitis [Unknown]
  - Skin oedema [Unknown]
  - Rash [Unknown]
  - Product dose omission issue [Unknown]
  - Incorrect dose administered [Unknown]

NARRATIVE: CASE EVENT DATE: 20240101
